FAERS Safety Report 10949318 (Version 4)
Quarter: 2016Q1

REPORT INFORMATION
  Report Type: Report from Study
  Country: JP (occurrence: JP)
  Receive Date: 20150324
  Receipt Date: 20160111
  Transmission Date: 20160525
  Serious: Yes (Death, Hospitalization, Disabling, Other)
  Sender: FDA-Public Use
  Company Number: JP-INCYTE CORPORATION-2015IN001049

PATIENT
  Age: 49 Year
  Sex: Female
  Weight: 80 kg

DRUGS (5)
  1. JAKAFI [Suspect]
     Active Substance: RUXOLITINIB
     Indication: MYELOFIBROSIS
     Dosage: 5 MG, BID
     Route: 048
     Dates: start: 20141208, end: 20150105
  2. IRRADIATED LEUKOCYTE POOR RED CELLS [Concomitant]
     Indication: MYELOFIBROSIS
     Dosage: 2 IU, UNK
     Route: 065
  3. SULFAMETHOXAZOLE AND TRIMETHOPRIM [Concomitant]
     Active Substance: SULFAMETHOXAZOLE\TRIMETHOPRIM
     Indication: INFECTION PROPHYLAXIS
     Dosage: 1 DF, QD
     Route: 048
     Dates: start: 20141212, end: 20150107
  4. MEROPENEM. [Suspect]
     Active Substance: MEROPENEM
     Indication: PRODUCT USED FOR UNKNOWN INDICATION
     Dosage: 0.5 G, QD
     Route: 065
     Dates: start: 20150115, end: 20150116
  5. IRRADIATED PLATELET CONCENTRATE, LEUKOCYTES R [Concomitant]
     Indication: MYELOFIBROSIS
     Dosage: 10 IU, QD
     Route: 065
     Dates: start: 20141229

REACTIONS (5)
  - Acute kidney injury [Not Recovered/Not Resolved]
  - Lung disorder [Recovering/Resolving]
  - Epilepsy [Recovering/Resolving]
  - Myelofibrosis [Fatal]
  - White blood cell count decreased [Recovered/Resolved]

NARRATIVE: CASE EVENT DATE: 20150102
